FAERS Safety Report 15826784 (Version 2)
Quarter: 2019Q2

REPORT INFORMATION
  Report Type: Report from Study
  Country: US (occurrence: US)
  Receive Date: 20190115
  Receipt Date: 20190524
  Transmission Date: 20190711
  Serious: No
  Sender: FDA-Public Use
  Company Number: PHEH2019US001897

PATIENT
  Sex: Female

DRUGS (1)
  1. COSENTYX [Suspect]
     Active Substance: SECUKINUMAB
     Indication: PSORIASIS
     Dosage: UNK UNK, QMO
     Route: 058
     Dates: start: 2018

REACTIONS (5)
  - Sinusitis [Unknown]
  - Skin irritation [Unknown]
  - Rash [Unknown]
  - Drug ineffective [Unknown]
  - Ear disorder [Unknown]
